FAERS Safety Report 13937425 (Version 1)
Quarter: 2017Q3

REPORT INFORMATION
  Report Type: Spontaneous
  Country: US (occurrence: US)
  Receive Date: 20170905
  Receipt Date: 20170905
  Transmission Date: 20171127
  Serious: No
  Sender: FDA-Public Use
  Company Number: US-TEVA-802624USA

PATIENT
  Sex: Female

DRUGS (1)
  1. FENTANYL. [Suspect]
     Active Substance: FENTANYL
     Indication: PAIN
     Route: 065
     Dates: start: 20170817

REACTIONS (9)
  - Product adhesion issue [Unknown]
  - Application site pruritus [Unknown]
  - Chest discomfort [Unknown]
  - Dermal absorption impaired [Unknown]
  - Skin warm [Unknown]
  - Dyspnoea [Unknown]
  - Skin irritation [Unknown]
  - Adverse event [Unknown]
  - Product quality issue [Unknown]
